FAERS Safety Report 8817134 (Version 1)
Quarter: 2012Q4

REPORT INFORMATION
  Report Type: Spontaneous
  Country: US (occurrence: None)
  Receive Date: 20121003
  Receipt Date: 20121003
  Transmission Date: 20130627
  Serious: Yes (Other)
  Sender: FDA-Public Use
  Company Number: None

PATIENT
  Age: 57 Year
  Sex: Female
  Weight: 80.74 kg

DRUGS (1)
  1. WELCHOL [Suspect]
     Dates: start: 201201, end: 201204

REACTIONS (5)
  - Alopecia [None]
  - Dyspepsia [None]
  - Dyspepsia [None]
  - Myocardial infarction [None]
  - Eating disorder [None]
